FAERS Safety Report 6732640-9 (Version None)
Quarter: 2010Q2

REPORT INFORMATION
  Report Type: 
  Country: None (occurrence: None)
  Receive Date: 20100519
  Receipt Date: 20100513
  Transmission Date: 20101027
  Serious: Yes (Other)
  Sender: FDA-Public Use
  Company Number: CA-PURDUE-CAN-2010-0001361

PATIENT
  Sex: Male

DRUGS (1)
  1. OXYCODONE HCL IR TABLETS [Suspect]
     Indication: HEADACHE
     Dosage: 10 MG Q4H
     Route: 048
     Dates: start: 20080101

REACTIONS (7)
  - AGITATION [None]
  - DRUG INEFFECTIVE [None]
  - GENERALISED ERYTHEMA [None]
  - HALLUCINATION [None]
  - PARAESTHESIA [None]
  - SKIN BURNING SENSATION [None]
  - VASOCONSTRICTION [None]
